FAERS Safety Report 13369082 (Version 1)
Quarter: 2017Q1

REPORT INFORMATION
  Report Type: Spontaneous
  Country: US (occurrence: US)
  Receive Date: 20170324
  Receipt Date: 20170324
  Transmission Date: 20170429
  Serious: Yes (Hospitalization)
  Sender: FDA-Public Use
  Company Number: None

PATIENT
  Age: 59 Year
  Sex: Female

DRUGS (12)
  1. COMPAZINE [Concomitant]
     Active Substance: PROCHLORPERAZINE MALEATE
  2. PROCHLORPER [Concomitant]
  3. PACLITAXEL. [Concomitant]
     Active Substance: PACLITAXEL
  4. DEXAMETHASON [Concomitant]
     Active Substance: DEXAMETHASONE
  5. ZARXIO [Suspect]
     Active Substance: FILGRASTIM-SNDZ
     Indication: MALIGNANT MELANOMA
     Route: 058
  6. DIPHENHYDRAM [Concomitant]
  7. ONDANSETRON [Concomitant]
     Active Substance: ONDANSETRON
  8. ACETAMIN [Concomitant]
     Active Substance: ACETAMINOPHEN
  9. FAMOTIDINE. [Concomitant]
     Active Substance: FAMOTIDINE
  10. HYDROCHOROT [Concomitant]
  11. BACTRIM DS [Concomitant]
     Active Substance: SULFAMETHOXAZOLE\TRIMETHOPRIM
  12. CARBOPLATIN. [Concomitant]
     Active Substance: CARBOPLATIN

REACTIONS (1)
  - Intestinal obstruction [None]

NARRATIVE: CASE EVENT DATE: 201703
